FAERS Safety Report 5127080-2 (Version None)
Quarter: 2006Q4

REPORT INFORMATION
  Report Type: 
  Country: None (occurrence: None)
  Receive Date: 20061013
  Receipt Date: 20061012
  Transmission Date: 20070319
  Serious: Yes (Other)
  Sender: FDA-Public Use
  Company Number: US-GLAXOSMITHKLINE-A0623343A

PATIENT
  Sex: Male

DRUGS (2)
  1. CITRUCEL REGULAR SUSPENSION ORANGE [Suspect]
     Indication: NUTRITIONAL SUPPORT
     Route: 048
  2. UNSPECIFIED MEDICATION [Suspect]

REACTIONS (2)
  - DRUG INTERACTION [None]
  - HYPOGLYCAEMIA [None]
